FAERS Safety Report 5429054-0 (Version None)
Quarter: 2007Q3

REPORT INFORMATION
  Report Type: 
  Country: None (occurrence: None)
  Receive Date: 20070829
  Receipt Date: 20070418
  Transmission Date: 20080115
  Serious: Yes (Other)
  Sender: FDA-Public Use
  Company Number: A0646616A

PATIENT
  Age: 18 Year
  Sex: Male

DRUGS (2)
  1. MALARONE [Suspect]
     Indication: MALARIA PROPHYLAXIS
     Dosage: 250MG PER DAY
     Route: 048
     Dates: start: 20070210, end: 20070301
  2. CLARITIN-D [Concomitant]

REACTIONS (3)
  - ABNORMAL DREAMS [None]
  - DIZZINESS [None]
  - HALLUCINATION [None]
